FAERS Safety Report 4687677-0 (Version None)
Quarter: 2005Q2

REPORT INFORMATION
  Report Type: 
  Country: None (occurrence: None)
  Receive Date: 20050610
  Receipt Date: 20050605
  Transmission Date: 20051028
  Serious: Yes (Other)
  Sender: FDA-Public Use
  Company Number: PHEH2005US06385

PATIENT
  Age: 48 Year
  Sex: Female

DRUGS (2)
  1. FEMARA [Suspect]
  2. FOSAMAX [Suspect]

REACTIONS (5)
  - ABDOMINAL PAIN [None]
  - GASTRITIS EROSIVE [None]
  - NAUSEA [None]
  - OSTEOPENIA [None]
  - PAIN [None]
